FAERS Safety Report 4880791-6 (Version None)
Quarter: 2006Q1

REPORT INFORMATION
  Report Type: 
  Country: None (occurrence: None)
  Receive Date: 20060111
  Receipt Date: 20040514
  Transmission Date: 20060701
  Serious: No
  Sender: FDA-Public Use
  Company Number: 2004S1000099

PATIENT

DRUGS (1)
  1. CUBICIN [Suspect]
     Dates: start: 20040501

REACTIONS (1)
  - HAEMOGLOBIN DECREASED [None]
